FAERS Safety Report 10228755 (Version 1)
Quarter: 2014Q2

REPORT INFORMATION
  Report Type: Spontaneous
  Country: US (occurrence: US)
  Receive Date: 20140610
  Receipt Date: 20140610
  Transmission Date: 20141212
  Serious: Yes (Other)
  Sender: FDA-Public Use
  Company Number: US-ELI_LILLY_AND_COMPANY-US201406002381

PATIENT
  Age: 34 Year
  Sex: Female

DRUGS (5)
  1. STRATTERA [Suspect]
     Indication: ATTENTION DEFICIT/HYPERACTIVITY DISORDER
     Dosage: 25 MG, UNKNOWN
     Route: 065
     Dates: start: 1999
  2. STRATTERA [Suspect]
     Dosage: 40 MG, UNKNOWN
     Route: 065
  3. STRATTERA [Suspect]
     Dosage: 60 MG, UNKNOWN
     Route: 065
  4. STRATTERA [Suspect]
     Dosage: 80 MG, UNKNOWN
     Route: 065
  5. ADDERALL [Concomitant]
     Dosage: UNK, UNKNOWN
     Route: 065

REACTIONS (5)
  - Suicidal ideation [Unknown]
  - Crying [Unknown]
  - Aggression [Unknown]
  - Depressed mood [Unknown]
  - Aggression [Unknown]
